FAERS Safety Report 9645791 (Version 1)
Quarter: 2013Q4

REPORT INFORMATION
  Report Type: Spontaneous
  Country: BR (occurrence: BR)
  Receive Date: 20131025
  Receipt Date: 20131025
  Transmission Date: 20140711
  Serious: Yes (Disabling, Other)
  Sender: FDA-Public Use
  Company Number: BR-JNJFOC-20131011892

PATIENT
  Sex: Female
  Weight: 83 kg

DRUGS (9)
  1. REMICADE [Suspect]
     Indication: RHEUMATOID ARTHRITIS
     Route: 042
     Dates: start: 20131016
  2. REMICADE [Suspect]
     Indication: RHEUMATOID ARTHRITIS
     Dosage: INITIALLY INFLIXIMAB WAS GIVEN ONCE EVERY 15 DAYS, LATER ONCE EVERY 30 DAYS
     Route: 042
     Dates: start: 2013
  3. REMICADE [Suspect]
     Indication: PSORIATIC ARTHROPATHY
     Route: 042
     Dates: start: 20131016
  4. REMICADE [Suspect]
     Indication: PSORIATIC ARTHROPATHY
     Dosage: INITIALLY INFLIXIMAB WAS GIVEN ONCE EVERY 15 DAYS, LATER ONCE EVERY 30 DAYS
     Route: 042
     Dates: start: 2013
  5. ATENOLOL [Concomitant]
     Indication: HYPERTENSION
     Route: 065
  6. GLIFAGE [Concomitant]
     Indication: DIABETES MELLITUS
     Route: 065
  7. LOSARTAN [Concomitant]
     Indication: HYPERTENSION
     Route: 065
  8. FUROSEMIDE [Concomitant]
     Indication: HYPERTENSION
     Route: 065
  9. ALDOMET [Concomitant]
     Indication: HYPERTENSION
     Route: 065

REACTIONS (5)
  - Psoriatic arthropathy [Not Recovered/Not Resolved]
  - Abasia [Unknown]
  - Drug ineffective [Unknown]
  - Blood creatinine [Unknown]
  - Weight decreased [Unknown]
